FAERS Safety Report 7756030-5 (Version None)
Quarter: 2011Q3

REPORT INFORMATION
  Report Type: 
  Country: None (occurrence: None)
  Receive Date: 20110908
  Receipt Date: 20110830
  Transmission Date: 20111222
  Serious: Yes (Hospitalization)
  Sender: FDA-Public Use
  Company Number: 2011029692

PATIENT
  Age: 51 Year
  Sex: Male
  Weight: 111.1313 kg

DRUGS (15)
  1. HYDROCHLOROTHIAZIDE [Concomitant]
  2. NORVASC [Concomitant]
  3. SPIRIVA [Concomitant]
  4. ATROVENT [Concomitant]
  5. PRAVASTATIN [Concomitant]
  6. ZEMAIRA [Suspect]
     Indication: ALPHA-1 ANTI-TRYPSIN DEFICIENCY
     Dosage: SEE IMAGE
     Route: 042
     Dates: start: 20090101
  7. ZEMAIRA [Suspect]
     Indication: ALPHA-1 ANTI-TRYPSIN DEFICIENCY
     Dosage: SEE IMAGE
     Route: 042
     Dates: start: 20110826, end: 20110826
  8. METFORMIN HCL [Concomitant]
  9. ACETAMINOPHEN [Concomitant]
  10. PULMICORT [Concomitant]
  11. VITAMIN D [Concomitant]
  12. NEXIUM [Concomitant]
  13. OXYGEN (OXYGEN) [Concomitant]
  14. PROVENTIL [Concomitant]
  15. LISINOPRIL [Concomitant]

REACTIONS (3)
  - EYE DISORDER [None]
  - COUGH [None]
  - CEREBROVASCULAR ACCIDENT [None]
